FAERS Safety Report 7558197-0 (Version None)
Quarter: 2011Q2

REPORT INFORMATION
  Report Type: 
  Country: None (occurrence: None)
  Receive Date: 20110620
  Receipt Date: 20110614
  Transmission Date: 20111010
  Serious: Yes (Other)
  Sender: FDA-Public Use
  Company Number: AU-PFIZER INC-2011130255

PATIENT
  Age: 36 Year
  Sex: Male

DRUGS (4)
  1. OLANZAPINE [Concomitant]
     Indication: PSYCHOTIC DISORDER
  2. ALPRAZOLAM [Suspect]
  3. MS CONTIN [Suspect]
     Dosage: 60 MG, 2X/DAY OR MORE
     Route: 042
  4. DIAZEPAM [Concomitant]
     Indication: DEPRESSION
     Dosage: 20 MG, UNK

REACTIONS (1)
  - DRUG ABUSE [None]
